FAERS Safety Report 6108338-7 (Version None)
Quarter: 2009Q1

REPORT INFORMATION
  Report Type: 
  Country: None (occurrence: None)
  Receive Date: 20090309
  Receipt Date: 20090302
  Transmission Date: 20090719
  Serious: Yes (Other)
  Sender: FDA-Public Use
  Company Number: US-AMGEN-KDL334138

PATIENT
  Sex: Female

DRUGS (1)
  1. ENBREL [Suspect]
     Indication: DRUG USE FOR UNKNOWN INDICATION
     Route: 058

REACTIONS (7)
  - ARTHRALGIA [None]
  - FALL [None]
  - LOWER LIMB FRACTURE [None]
  - MENISCUS LESION [None]
  - PROCEDURAL PAIN [None]
  - SYNOVIAL CYST [None]
  - VASCULITIS [None]
